FAERS Safety Report 5168653-0 (Version None)
Quarter: 2006Q4

REPORT INFORMATION
  Report Type: 
  Country: None (occurrence: None)
  Receive Date: 20061211
  Receipt Date: 20061201
  Transmission Date: 20070319
  Serious: Yes (Hospitalization)
  Sender: FDA-Public Use
  Company Number: US-JNJFOC-20061201078

PATIENT
  Sex: Female

DRUGS (11)
  1. INFLIXIMAB [Suspect]
     Indication: RHEUMATOID ARTHRITIS
     Route: 042
  2. ASPIRIN [Concomitant]
  3. CELEBREX [Concomitant]
  4. DILTIAZEM HCL [Concomitant]
  5. FOSAMAX [Concomitant]
  6. FOLIC ACID [Concomitant]
  7. METHOTREXATE [Concomitant]
  8. MULTI-VITAMIN [Concomitant]
  9. VITAMIN E [Concomitant]
  10. NEXIUM [Concomitant]
  11. CALCIUM [Concomitant]

REACTIONS (2)
  - CHOLECYSTECTOMY [None]
  - INTESTINAL OBSTRUCTION [None]
